FAERS Safety Report 18115197 (Version 2)
Quarter: 2020Q3

REPORT INFORMATION
  Report Type: Spontaneous
  Country: US (occurrence: US)
  Receive Date: 20200805
  Receipt Date: 20200810
  Transmission Date: 20201103
  Serious: No
  Sender: FDA-Public Use
  Company Number: US-ALLERGAN-2000056US

PATIENT
  Age: 48 Year
  Sex: Female
  Weight: 91.63 kg

DRUGS (7)
  1. NALBUPHINE [Suspect]
     Active Substance: NALBUPHINE
     Indication: MIGRAINE
     Dosage: 10MG/ML INJECTION, 1 ML TWICE A DAY
  2. PROMETHAZINE [Concomitant]
     Active Substance: PROMETHAZINE HYDROCHLORIDE
     Indication: NAUSEA
     Dosage: 25MG INJECTION IN THE HIP, 3 TIMES A WEEK
     Dates: start: 2009
  3. PROMETHAZINE [Concomitant]
     Active Substance: PROMETHAZINE HYDROCHLORIDE
     Indication: PAIN
  4. PERCOCET [Concomitant]
     Active Substance: ACETAMINOPHEN\OXYCODONE HYDROCHLORIDE
     Indication: PAIN
     Dosage: 10MG\325MG TABLET, PRESCRIBED 3 TIMES A DAY, BUT DOESN^T TAKE MORE THAN 5 INDIVIDUAL TIMES A WEEK
     Dates: start: 2018
  5. KLONOPIN [Concomitant]
     Active Substance: CLONAZEPAM
     Indication: PANIC ATTACK
     Dosage: 2 MG, PRN
     Dates: start: 2004
  6. CELEXA [Suspect]
     Active Substance: CITALOPRAM HYDROBROMIDE
     Indication: DEPRESSION
     Dosage: 20 MG, TID
  7. DILAUDID [Concomitant]
     Active Substance: HYDROMORPHONE HYDROCHLORIDE
     Indication: PAIN
     Dosage: 2 MG, BID

REACTIONS (6)
  - Product dose omission issue [Unknown]
  - Off label use [Unknown]
  - Nausea [Unknown]
  - Eating disorder [Unknown]
  - Vomiting [Unknown]
  - Pain [Unknown]

NARRATIVE: CASE EVENT DATE: 20191204
